FAERS Safety Report 18605437 (Version 2)
Quarter: 2021Q1

REPORT INFORMATION
  Report Type: Spontaneous
  Country: JP (occurrence: JP)
  Receive Date: 20201211
  Receipt Date: 20210129
  Transmission Date: 20210419
  Serious: Yes (Other)
  Sender: FDA-Public Use
  Company Number: JP-PFIZER INC-2020482302

PATIENT
  Sex: Female

DRUGS (1)
  1. ENBREL [Suspect]
     Active Substance: ETANERCEPT
     Dosage: UNK
     Route: 058

REACTIONS (4)
  - Injection site pain [Unknown]
  - Injection site haemorrhage [Recovered/Resolved]
  - Injury associated with device [Unknown]
  - Wrong technique in device usage process [Unknown]
